FAERS Safety Report 10721944 (Version 1)
Quarter: 2015Q1

REPORT INFORMATION
  Report Type: Report from Study
  Country: BR (occurrence: BR)
  Receive Date: 20150119
  Receipt Date: 20150119
  Transmission Date: 20150721
  Serious: Yes (Hospitalization)
  Sender: FDA-Public Use
  Company Number: BR-ABBVIE-15K-020-1333092-00

PATIENT
  Age: 67 Year
  Sex: Female
  Weight: 90 kg

DRUGS (4)
  1. BACLOFEN. [Concomitant]
     Active Substance: BACLOFEN
     Indication: RHEUMATOID ARTHRITIS
     Route: 048
     Dates: start: 20141209
  2. ARCOXIA [Concomitant]
     Active Substance: ETORICOXIB
     Indication: PAIN
     Dosage: UNSPECIFIED DOSE
     Route: 048
     Dates: start: 20141209
  3. HUMIRA [Suspect]
     Active Substance: ADALIMUMAB
     Indication: RHEUMATOID ARTHRITIS
     Route: 058
     Dates: start: 201401
  4. DEOCIL [Concomitant]
     Indication: PAIN
     Dosage: UNSPECIFIED DOSE
     Route: 048
     Dates: start: 20141209

REACTIONS (5)
  - Disorientation [Not Recovered/Not Resolved]
  - Unevaluable event [Recovering/Resolving]
  - Anaemia [Unknown]
  - Amnesia [Recovering/Resolving]
  - Confusional state [Not Recovered/Not Resolved]

NARRATIVE: CASE EVENT DATE: 201501
